FAERS Safety Report 19410857 (Version 3)
Quarter: 2021Q4

REPORT INFORMATION
  Report Type: Report from Study
  Country: RU (occurrence: RU)
  Receive Date: 20210614
  Receipt Date: 20211203
  Transmission Date: 20220303
  Serious: Yes (Other)
  Sender: FDA-Public Use
  Company Number: RU-ABBVIE-21K-251-3944518-00

PATIENT
  Sex: Female

DRUGS (6)
  1. LOPINAVIR\RITONAVIR [Suspect]
     Active Substance: LOPINAVIR\RITONAVIR
     Indication: HIV infection
     Dosage: PER DAY, FIRST COURSE
     Route: 048
     Dates: start: 20201123
  2. DOLUTEGRAVIR [Suspect]
     Active Substance: DOLUTEGRAVIR
     Indication: HIV infection
     Dosage: PER DAY, FIRST COURSE
     Route: 048
     Dates: start: 20201101, end: 20201122
  3. DOLUTEGRAVIR [Suspect]
     Active Substance: DOLUTEGRAVIR
     Dosage: PER DAY
     Route: 048
     Dates: start: 20210206
  4. LAMIVUDINE [Suspect]
     Active Substance: LAMIVUDINE
     Indication: HIV infection
     Dosage: PER DAY, FIRST COURSE
     Route: 048
     Dates: start: 20201101
  5. LAMIVUDINE [Suspect]
     Active Substance: LAMIVUDINE
     Dosage: PER DAY
     Route: 048
     Dates: start: 20210206
  6. TENOFOVIR DISOPROXIL FUMARATE [Suspect]
     Active Substance: TENOFOVIR DISOPROXIL FUMARATE
     Indication: HIV infection
     Dosage: PER DAY. FIRST COURSE
     Route: 048
     Dates: start: 20201123

REACTIONS (2)
  - Abortion spontaneous [Unknown]
  - Maternal exposure during pregnancy [Unknown]
